FAERS Safety Report 13646467 (Version 3)
Quarter: 2017Q3

REPORT INFORMATION
  Report Type: Report from Study
  Country: IE (occurrence: IE)
  Receive Date: 20170613
  Receipt Date: 20170830
  Transmission Date: 20171127
  Serious: Yes (Hospitalization, Other)
  Sender: FDA-Public Use
  Company Number: PHFR2016IE004036

PATIENT
  Age: 58 Year
  Sex: Male
  Weight: 110.2 kg

DRUGS (9)
  1. TRAMETINIB [Suspect]
     Active Substance: TRAMETINIB
     Indication: MELANOMA RECURRENT
     Dosage: 2 MG, QD
     Route: 048
     Dates: start: 201408, end: 20160509
  2. COD-LIVER OIL [Concomitant]
     Active Substance: FISH OIL
     Indication: PRODUCT USED FOR UNKNOWN INDICATION
     Dosage: 1 DF, QD
     Route: 048
  3. FERROGRAD C [Concomitant]
     Active Substance: ASCORBIC ACID\FERROUS SULFATE
     Indication: PRODUCT USED FOR UNKNOWN INDICATION
     Dosage: 325 MG, UNK
     Route: 048
     Dates: start: 20160919
  4. DABRAFENIB [Suspect]
     Active Substance: DABRAFENIB
     Indication: MALIGNANT MELANOMA
     Dosage: 150 MG, BID
     Route: 048
     Dates: start: 201408, end: 20160509
  5. LANSOPRAZOLE. [Concomitant]
     Active Substance: LANSOPRAZOLE
     Indication: PRODUCT USED FOR UNKNOWN INDICATION
     Dosage: 30 MG, QD
     Route: 048
     Dates: start: 20160801
  6. DICLOFENAC [Concomitant]
     Active Substance: DICLOFENAC
     Indication: PRODUCT USED FOR UNKNOWN INDICATION
     Route: 065
  7. OLMESARTAN [Concomitant]
     Active Substance: OLMESARTAN
     Indication: HYPERTENSION
     Dosage: 20 MG, QD
     Route: 048
  8. GLUCOSAMINE [Concomitant]
     Active Substance: GLUCOSAMINE
     Indication: PRODUCT USED FOR UNKNOWN INDICATION
     Dosage: 1 DF, QD
     Route: 048
  9. OMESAR [Concomitant]
     Active Substance: OLMESARTAN MEDOXOMIL
     Indication: PRODUCT USED FOR UNKNOWN INDICATION
     Dosage: 10 MG, UNK
     Route: 048
     Dates: end: 20160801

REACTIONS (18)
  - Stomatitis [Recovered/Resolved with Sequelae]
  - Acute kidney injury [Recovered/Resolved with Sequelae]
  - White blood cell count decreased [Recovered/Resolved]
  - Blood albumin decreased [Unknown]
  - Red blood cell count decreased [Unknown]
  - Lymphadenopathy [Recovered/Resolved]
  - Oropharyngeal pain [Unknown]
  - Dehydration [Unknown]
  - Swelling [Recovered/Resolved with Sequelae]
  - Second primary malignancy [Recovered/Resolved]
  - Urine output decreased [Recovered/Resolved]
  - Tonsil cancer [Recovered/Resolved]
  - Lymphocyte count decreased [Recovered/Resolved]
  - Metastases to lymph nodes [Recovered/Resolved]
  - Neck mass [Unknown]
  - Haemoglobin decreased [Unknown]
  - Lethargy [Unknown]
  - Neutrophil count decreased [Unknown]

NARRATIVE: CASE EVENT DATE: 20160225
